FAERS Safety Report 9892722 (Version 3)
Quarter: 2014Q1

REPORT INFORMATION
  Report Type: Spontaneous
  Country: US (occurrence: US)
  Receive Date: 20140212
  Receipt Date: 20140310
  Transmission Date: 20141002
  Serious: No
  Sender: FDA-Public Use
  Company Number: US-009507513-1402USA003098

PATIENT
  Age: 18 Year
  Sex: Female
  Weight: 68.48 kg

DRUGS (1)
  1. NEXPLANON [Suspect]
     Indication: PRODUCT USED FOR UNKNOWN INDICATION
     Dosage: UNK
     Route: 059
     Dates: start: 20131113

REACTIONS (1)
  - Device kink [Unknown]
